FAERS Safety Report 8259141-3 (Version None)
Quarter: 2012Q2

REPORT INFORMATION
  Report Type: 
  Country: None (occurrence: None)
  Receive Date: 20120403
  Receipt Date: 20120403
  Transmission Date: 20120825
  Serious: Yes (Other)
  Sender: FDA-Public Use
  Company Number: None

PATIENT
  Age: 72 Year
  Sex: Female
  Weight: 61.6892 kg

DRUGS (1)
  1. TRIAMCINOLONE [Suspect]
     Indication: MULTIPLE ALLERGIES
     Dosage: 1 SPRAY EA 1 X DAY NOSE
     Route: 045
     Dates: start: 20120120, end: 20120303

REACTIONS (1)
  - VISUAL IMPAIRMENT [None]
